FAERS Safety Report 5495362-0 (Version None)
Quarter: 2007Q4

REPORT INFORMATION
  Report Type: 
  Country: None (occurrence: None)
  Receive Date: 20071024
  Receipt Date: 20071015
  Transmission Date: 20080405
  Serious: Yes (Other)
  Sender: FDA-Public Use
  Company Number: US-PFIZER INC-2007087228

PATIENT
  Sex: Male
  Weight: 77.1 kg

DRUGS (1)
  1. DEPO-TESTOSTERONE [Suspect]
     Indication: BLOOD TESTOSTERONE DECREASED
     Route: 030

REACTIONS (2)
  - PROSTATECTOMY [None]
  - PROSTATIC SPECIFIC ANTIGEN INCREASED [None]
